FAERS Safety Report 7153486-6 (Version None)
Quarter: 2010Q4

REPORT INFORMATION
  Report Type: 
  Country: None (occurrence: None)
  Receive Date: 20101213
  Receipt Date: 20101203
  Transmission Date: 20110411
  Serious: Yes (Hospitalization)
  Sender: FDA-Public Use
  Company Number: B0649619B

PATIENT
  Sex: Female
  Weight: 86.1 kg

DRUGS (6)
  1. LAPATINIB [Suspect]
     Indication: BREAST CANCER
     Dosage: 1500MG PER DAY
     Route: 048
     Dates: start: 20100514
  2. TRASTUZUMAB [Suspect]
     Indication: BREAST CANCER
     Dosage: 2MGK WEEKLY
     Route: 042
     Dates: start: 20100108
  3. DOCETAXEL [Suspect]
     Indication: BREAST CANCER
     Dosage: 75MGM2 EVERY 3 WEEKS
     Route: 042
     Dates: start: 20100108, end: 20100312
  4. STILNOX [Concomitant]
     Dosage: 1G AT NIGHT
     Route: 048
  5. EFFEXOR [Concomitant]
     Dosage: 225G PER DAY
     Route: 048
  6. ALPRAZOLAM [Concomitant]

REACTIONS (2)
  - DEPRESSION [None]
  - OVERDOSE [None]
